FAERS Safety Report 20871167 (Version 1)
Quarter: 2022Q2

REPORT INFORMATION
  Report Type: Spontaneous
  Country: US (occurrence: None)
  Receive Date: 20220524
  Receipt Date: 20220524
  Transmission Date: 20220721
  Serious: Yes (Hospitalization)
  Sender: FDA-Public Use
  Company Number: None

PATIENT
  Age: 67 Year
  Sex: Female

DRUGS (1)
  1. XELJANZ XR [Suspect]
     Active Substance: TOFACITINIB CITRATE
     Indication: Rheumatoid arthritis
     Dosage: FREQUENCY : DAILY;?
     Route: 048
     Dates: start: 20201029

REACTIONS (7)
  - Therapy interrupted [None]
  - Respiratory failure [None]
  - COVID-19 [None]
  - Epstein-Barr virus infection reactivation [None]
  - Infection [None]
  - Hypoxia [None]
  - Rash [None]

NARRATIVE: CASE EVENT DATE: 20220413
